FAERS Safety Report 24446869 (Version 2)
Quarter: 2024Q4

REPORT INFORMATION
  Report Type: Spontaneous
  Country: CL (occurrence: CL)
  Receive Date: 20241016
  Receipt Date: 20241223
  Transmission Date: 20250115
  Serious: Yes (Death, Other)
  Sender: PFIZER
  Company Number: CL-PFIZER INC-PV202400115379

PATIENT
  Age: 69 Year
  Sex: Female

DRUGS (1)
  1. LORBRENA [Suspect]
     Active Substance: LORLATINIB
     Indication: Lung neoplasm malignant
     Dosage: 100 MG, DAILY
     Route: 048

REACTIONS (13)
  - Death [Fatal]
  - General physical health deterioration [Unknown]
  - Mental impairment [Unknown]
  - Urinary tract infection [Recovered/Resolved]
  - Depressed mood [Unknown]
  - Productive cough [Unknown]
  - Nasopharyngitis [Unknown]
  - Pyrexia [Unknown]
  - Decreased appetite [Unknown]
  - Mobility decreased [Unknown]
  - Vomiting [Unknown]
  - Dysphagia [Unknown]
  - Anal incontinence [Unknown]

NARRATIVE: CASE EVENT DATE: 20240101
